FAERS Safety Report 14142279 (Version 1)
Quarter: 2017Q4

REPORT INFORMATION
  Report Type: Report from Study
  Country: US (occurrence: US)
  Receive Date: 20171030
  Receipt Date: 20171030
  Transmission Date: 20180321
  Serious: No
  Sender: FDA-Public Use
  Company Number: US-IPSEN BIOPHARMACEUTICALS, INC.-2017-02887

PATIENT
  Age: 4 Year
  Sex: Male
  Weight: 10 kg

DRUGS (3)
  1. INCRELEX [Suspect]
     Active Substance: MECASERMIN
     Indication: OFF LABEL USE
  2. LEVOTHYROXINE. [Concomitant]
     Active Substance: LEVOTHYROXINE
  3. INCRELEX [Suspect]
     Active Substance: MECASERMIN
     Indication: BODY HEIGHT BELOW NORMAL
     Route: 065
     Dates: end: 2017

REACTIONS (4)
  - Pyrexia [Recovered/Resolved]
  - Off label use [Unknown]
  - Respiratory disorder [Recovered/Resolved]
  - Malaise [Unknown]

NARRATIVE: CASE EVENT DATE: 2017
